FAERS Safety Report 16216997 (Version 1)
Quarter: 2019Q2

REPORT INFORMATION
  Report Type: Spontaneous
  Country: JP (occurrence: JP)
  Receive Date: 20190419
  Receipt Date: 20190419
  Transmission Date: 20190711
  Serious: Yes (Death, Hospitalization)
  Sender: FDA-Public Use
  Company Number: JP-TEVA-2019-JP-002278J

PATIENT
  Age: 54 Year
  Sex: Male

DRUGS (1)
  1. PREDNISOLONE TABLETS 5MG. [Suspect]
     Active Substance: PREDNISOLONE
     Indication: PRODUCT USED FOR UNKNOWN INDICATION
     Route: 065
     Dates: start: 201707, end: 201707

REACTIONS (3)
  - Intestinal perforation [Fatal]
  - Gastrointestinal necrosis [Fatal]
  - Sepsis [Fatal]
